FAERS Safety Report 17478062 (Version 1)
Quarter: 2020Q1

REPORT INFORMATION
  Report Type: Spontaneous
  Country: ES (occurrence: ES)
  Receive Date: 20200228
  Receipt Date: 20200228
  Transmission Date: 20200409
  Serious: Yes (Death, Hospitalization, Other)
  Sender: FDA-Public Use
  Company Number: ES-BAYER-2020-032034

PATIENT
  Age: 61 Year
  Sex: Male
  Weight: 80 kg

DRUGS (2)
  1. STIVARGA [Suspect]
     Active Substance: REGORAFENIB
     Indication: METASTASES TO LIVER
  2. STIVARGA [Suspect]
     Active Substance: REGORAFENIB
     Indication: ADENOCARCINOMA OF COLON
     Dosage: 160 MG DAILY

REACTIONS (12)
  - Encephalopathy [None]
  - Asthenia [None]
  - Adenocarcinoma of colon [Fatal]
  - Mental impairment [None]
  - General physical health deterioration [Recovering/Resolving]
  - Hepatotoxicity [None]
  - Pyrexia [None]
  - Disorientation [None]
  - Drug intolerance [None]
  - Language disorder [None]
  - Hepatic function abnormal [None]
  - Escherichia test positive [None]
